FAERS Safety Report 14599420 (Version 1)
Quarter: 2018Q1

REPORT INFORMATION
  Report Type: Report from Study
  Country: SE (occurrence: SE)
  Receive Date: 20180305
  Receipt Date: 20180305
  Transmission Date: 20180509
  Serious: Yes (Life-Threatening)
  Sender: FDA-Public Use
  Company Number: SE-CELGENEUS-SWE-20180300063

PATIENT

DRUGS (3)
  1. REVLIMID [Suspect]
     Active Substance: LENALIDOMIDE
     Indication: MANTLE CELL LYMPHOMA
     Dosage: 15 MILLIGRAM
     Route: 048
  2. IBRUTINIB [Suspect]
     Active Substance: IBRUTINIB
     Indication: MANTLE CELL LYMPHOMA
     Dosage: 560 MILLIGRAM
     Route: 048
  3. RITUXIMAB. [Suspect]
     Active Substance: RITUXIMAB
     Indication: MANTLE CELL LYMPHOMA
     Route: 065

REACTIONS (1)
  - Respiratory disorder [Unknown]
